FAERS Safety Report 9229240 (Version 1)
Quarter: 2013Q2

REPORT INFORMATION
  Report Type: Spontaneous
  Country: US (occurrence: US)
  Receive Date: 20130412
  Receipt Date: 20130412
  Transmission Date: 20140414
  Serious: Yes (Other)
  Sender: FDA-Public Use
  Company Number: US-ASTELLAS-2012US012003

PATIENT
  Age: 65 Year
  Sex: Female

DRUGS (1)
  1. PROGRAF [Suspect]
     Indication: ORGAN TRANSPLANT
     Dosage: 3 MG, UID/QD
     Route: 048
     Dates: start: 20090520

REACTIONS (5)
  - Palpitations [Unknown]
  - Muscle tightness [Unknown]
  - Asthenia [Unknown]
  - Abdominal pain upper [Unknown]
  - Rash [Unknown]
